FAERS Safety Report 6403003-0 (Version None)
Quarter: 2009Q4

REPORT INFORMATION
  Report Type: 
  Country: None (occurrence: None)
  Receive Date: 20091016
  Receipt Date: 20091006
  Transmission Date: 20100525
  Serious: Yes (Other)
  Sender: FDA-Public Use
  Company Number: US-JNJFOC-20091002469

PATIENT
  Sex: Male
  Weight: 64.41 kg

DRUGS (2)
  1. REMICADE [Suspect]
     Route: 042
     Dates: start: 20060616
  2. REMICADE [Suspect]
     Indication: CROHN'S DISEASE
     Route: 042
     Dates: start: 20060616

REACTIONS (2)
  - COLECTOMY [None]
  - ILEOSTOMY [None]
